FAERS Safety Report 23023491 (Version 2)
Quarter: 2024Q2

REPORT INFORMATION
  Report Type: Spontaneous
  Country: CA (occurrence: CA)
  Receive Date: 20231003
  Receipt Date: 20240423
  Transmission Date: 20240716
  Serious: Yes (Hospitalization, Other)
  Sender: FDA-Public Use
  Company Number: CA-SANDOZ-SDZ2023CA033925

PATIENT
  Age: 26 Year
  Sex: Female

DRUGS (19)
  1. CLINDAMYCIN [Suspect]
     Active Substance: CLINDAMYCIN
     Indication: Nodule
     Dosage: BID PRN TO NODULES
     Route: 065
     Dates: start: 20220808, end: 20220811
  2. DOXYCYCLINE [Suspect]
     Active Substance: DOXYCYCLINE
     Indication: Product used for unknown indication
     Route: 048
  3. HYRIMOZ [Suspect]
     Active Substance: ADALIMUMAB-ADAZ
     Indication: Hidradenitis
     Dosage: 40 MG, QW
     Route: 058
     Dates: end: 20230711
  4. HYRIMOZ [Suspect]
     Active Substance: ADALIMUMAB-ADAZ
     Dosage: 80 MG, QW ,DOUBLE-DOSE
     Route: 058
     Dates: start: 20230711
  5. METRONIDAZOLE [Suspect]
     Active Substance: METRONIDAZOLE
     Indication: Product used for unknown indication
     Dosage: 500 MG, BID,  FOR 6 WEEKS
     Route: 048
     Dates: start: 20230322, end: 20230531
  6. MOXIFLOXACIN [Suspect]
     Active Substance: MOXIFLOXACIN
     Dosage: 400 MG, QD, FOR 10 WEEKS
     Route: 047
     Dates: start: 20230322, end: 20230531
  7. MOXIFLOXACIN [Suspect]
     Active Substance: MOXIFLOXACIN
     Indication: Product used for unknown indication
     Dosage: 400 MG, QD, FOR 10 WEEKS
     Route: 048
     Dates: start: 20230322, end: 20230531
  8. PREDNISONE [Suspect]
     Active Substance: PREDNISONE
     Dosage: 10 MG, QD, 1 WEEK
     Route: 048
     Dates: start: 20230131, end: 20230228
  9. PREDNISONE [Suspect]
     Active Substance: PREDNISONE
     Dosage: 20 MG, QD, 1 WEEK
     Route: 048
     Dates: start: 20230131, end: 20230228
  10. PREDNISONE [Suspect]
     Active Substance: PREDNISONE
     Dosage: 30 MG, QD, 1 WEEK
     Route: 048
     Dates: start: 20230131, end: 20230228
  11. PREDNISONE [Suspect]
     Active Substance: PREDNISONE
     Indication: Hidradenitis
     Dosage: 40 MG, QD, 1 WEEK
     Route: 048
     Dates: start: 20230131, end: 20230228
  12. RIFAMPIN [Suspect]
     Active Substance: RIFAMPIN
     Indication: Product used for unknown indication
     Dosage: 300 MG, BID, FOR 10 WEEKS
     Route: 048
     Dates: start: 20230322, end: 20230531
  13. CLOBETASOL [Concomitant]
     Active Substance: CLOBETASOL
     Indication: Abscess
     Dosage: BID X 1 WEEK TO ABSCESSES
     Route: 065
     Dates: start: 20230711
  14. DROSPIRENONE [Concomitant]
     Active Substance: DROSPIRENONE
     Indication: Product used for unknown indication
     Dosage: 4 MG PO DIE
     Route: 065
     Dates: start: 20230918
  15. KENALOG [Concomitant]
     Active Substance: TRIAMCINOLONE ACETONIDE
     Indication: Product used for unknown indication
     Dosage: 20 MG, STRENGTH- 10MG/CC
     Route: 058
     Dates: start: 20230302
  16. METFORMIN [Concomitant]
     Active Substance: METFORMIN HYDROCHLORIDE
     Indication: Product used for unknown indication
     Dosage: 500 MG, BID
     Route: 048
     Dates: start: 20230919
  17. SEMAGLUTIDE [Concomitant]
     Active Substance: SEMAGLUTIDE
     Indication: Product used for unknown indication
     Dosage: 0.5 MG, QW
     Route: 058
     Dates: start: 20220424
  18. SPIRONOLACTONE [Concomitant]
     Active Substance: SPIRONOLACTONE
     Indication: Product used for unknown indication
     Dosage: 150 MG, DIE
     Route: 065
     Dates: start: 20220709
  19. ZINC GLUCONATE [Concomitant]
     Active Substance: ZINC GLUCONATE
     Indication: Product used for unknown indication
     Dosage: 100 MG, QD, DIE
     Route: 048
     Dates: start: 20230919

REACTIONS (9)
  - Idiopathic intracranial hypertension [Unknown]
  - Cellulitis [Unknown]
  - Abscess [Unknown]
  - Loss of personal independence in daily activities [Unknown]
  - Pain [Unknown]
  - Depressive symptom [Unknown]
  - Drug ineffective [Unknown]
  - Off label use [Unknown]
  - Off label use [Unknown]
